FAERS Safety Report 15439971 (Version 1)
Quarter: 2018Q3

REPORT INFORMATION
  Report Type: Spontaneous
  Country: US (occurrence: US)
  Receive Date: 20180924
  Receipt Date: 20180924
  Transmission Date: 20181010
  Serious: Yes (Hospitalization)
  Sender: FDA-Public Use
  Company Number: None

PATIENT
  Age: 54 Year
  Sex: Male

DRUGS (5)
  1. TRIUMEQ [Suspect]
     Active Substance: ABACAVIR SULFATE\DOLUTEGRAVIR SODIUM\LAMIVUDINE
     Indication: HIV INFECTION
     Dosage: 600/50/30 MG QD PO
     Route: 048
     Dates: start: 20160421
  2. ACYCLOVIR. [Concomitant]
     Active Substance: ACYCLOVIR
  3. ASPIRIN. [Concomitant]
     Active Substance: ASPIRIN
  4. LORATADINE. [Concomitant]
     Active Substance: LORATADINE
  5. CLARITIN [Concomitant]
     Active Substance: LORATADINE

REACTIONS (3)
  - Back pain [None]
  - Therapy cessation [None]
  - Drug hypersensitivity [None]
